FAERS Safety Report 11503890 (Version 1)
Quarter: 2015Q3

REPORT INFORMATION
  Report Type: Spontaneous
  Country: US (occurrence: US)
  Receive Date: 20150914
  Receipt Date: 20150914
  Transmission Date: 20151125
  Serious: No
  Sender: FDA-Public Use
  Company Number: US-BAYER-2015-416268

PATIENT
  Age: 59 Year
  Sex: Female

DRUGS (16)
  1. TYLENOL [Concomitant]
     Active Substance: ACETAMINOPHEN
  2. BETASERON [Suspect]
     Active Substance: INTERFERON BETA-1B
     Dosage: UNK
     Dates: start: 2015, end: 2015
  3. KLONOPIN [Concomitant]
     Active Substance: CLONAZEPAM
  4. ZOVIRAX [Concomitant]
     Active Substance: ACYCLOVIR
  5. FOLTX [Concomitant]
     Active Substance: CYANOCOBALAMIN CO-57\FOLIC ACID\PYRIDOXINE HYDROCHLORIDE
  6. IMITREX [Concomitant]
     Active Substance: SUMATRIPTAN\SUMATRIPTAN SUCCINATE
  7. PRILOSEC [Concomitant]
     Active Substance: OMEPRAZOLE MAGNESIUM
  8. WELLBUTRIN [Interacting]
     Active Substance: BUPROPION HYDROCHLORIDE
     Dosage: UNK
     Dates: start: 2015, end: 2015
  9. NEURONTIN [Concomitant]
     Active Substance: GABAPENTIN
  10. ZOLOFT [Concomitant]
     Active Substance: SERTRALINE HYDROCHLORIDE
  11. GILENYA [Concomitant]
     Active Substance: FINGOLIMOD HYDROCHLORIDE
  12. CAPTOPRIL. [Concomitant]
     Active Substance: CAPTOPRIL
  13. NUVIGIL [Concomitant]
     Active Substance: ARMODAFINIL
  14. ROBAXIN [Concomitant]
     Active Substance: METHOCARBAMOL
  15. AMBIEN [Concomitant]
     Active Substance: ZOLPIDEM TARTRATE
  16. AMANTADINE [Concomitant]
     Active Substance: AMANTADINE

REACTIONS (5)
  - Vomiting [Recovered/Resolved]
  - Nausea [Recovered/Resolved]
  - Adverse reaction [Recovered/Resolved]
  - Depression [Recovered/Resolved]
  - Drug interaction [None]

NARRATIVE: CASE EVENT DATE: 2015
